FAERS Safety Report 4286196-3 (Version None)
Quarter: 2004Q1

REPORT INFORMATION
  Report Type: 
  Country: None (occurrence: None)
  Receive Date: 20040115
  Receipt Date: 20031027
  Transmission Date: 20041129
  Serious: Yes (Other)
  Sender: FDA-Public Use
  Company Number: 2003180935US

PATIENT
  Age: 41 Year
  Sex: Male
  Weight: 81.6 kg

DRUGS (1)
  1. ROGAINE [Suspect]
     Indication: ALOPECIA
     Dosage: AS DIRECTED, BID, TOPICAL
     Route: 061
     Dates: start: 20030923, end: 20031010

REACTIONS (4)
  - ANXIETY [None]
  - HEADACHE [None]
  - HEART RATE [None]
  - SYNCOPE [None]
